FAERS Safety Report 5453204-3 (Version None)
Quarter: 2007Q3

REPORT INFORMATION
  Report Type: 
  Country: None (occurrence: None)
  Receive Date: 20070914
  Receipt Date: 20070906
  Transmission Date: 20080115
  Serious: Yes (Death)
  Sender: FDA-Public Use
  Company Number: AU-MERCK-0709AUS00075

PATIENT
  Age: 63 Year
  Sex: Male

DRUGS (6)
  1. CANCIDAS [Suspect]
     Indication: ANTIFUNGAL PROPHYLAXIS
     Route: 051
     Dates: start: 20051101
  2. PREDNISOLONE [Concomitant]
     Indication: IMMUNOSUPPRESSION
     Route: 065
  3. MYCOPHENOLATE MOFETIL [Concomitant]
     Indication: IMMUNOSUPPRESSION
     Route: 065
  4. VORICONAZOLE [Concomitant]
     Indication: PROPHYLAXIS
     Route: 065
     Dates: start: 20041201, end: 20051101
  5. VORICONAZOLE [Concomitant]
     Route: 065
     Dates: start: 20051101, end: 20060301
  6. TERBINAFINE [Concomitant]
     Indication: ANTIFUNGAL PROPHYLAXIS
     Route: 065
     Dates: start: 20051101, end: 20060301

REACTIONS (3)
  - KLEBSIELLA SEPSIS [None]
  - LEUKAEMIA RECURRENT [None]
  - RETINITIS [None]
